FAERS Safety Report 9255328 (Version 1)
Quarter: 2013Q2

REPORT INFORMATION
  Report Type: Spontaneous
  Country: GB (occurrence: GB)
  Receive Date: 20130425
  Receipt Date: 20130425
  Transmission Date: 20140414
  Serious: Yes (Other)
  Sender: FDA-Public Use
  Company Number: GB-ABBOTT-13P-167-1066508-00

PATIENT
  Age: 19 Year
  Sex: Female
  Weight: 59 kg

DRUGS (2)
  1. HUMIRA [Suspect]
     Indication: CROHN^S DISEASE
     Route: 058
     Dates: end: 20120227
  2. AZATHIOPRINE [Concomitant]
     Indication: CROHN^S DISEASE
     Dosage: OD
     Route: 048
     Dates: start: 2012

REACTIONS (5)
  - Erythema [Recovered/Resolved]
  - Injection site pain [Recovered/Resolved]
  - Local swelling [Recovered/Resolved]
  - Pain in extremity [Recovering/Resolving]
  - Injection site reaction [Recovering/Resolving]
